FAERS Safety Report 5338300-3 (Version None)
Quarter: 2007Q2

REPORT INFORMATION
  Report Type: 
  Country: None (occurrence: None)
  Receive Date: 20070327
  Receipt Date: 20070117
  Transmission Date: 20071010
  Serious: No
  Sender: FDA-Public Use
  Company Number: 235190

PATIENT
  Age: 64 Year
  Sex: Male
  Weight: 92.5 kg

DRUGS (3)
  1. AVASTIN [Suspect]
     Indication: COLON CANCER METASTATIC
     Dosage: 448 MG, Q2W, INTRAVENOUS
     Route: 042
     Dates: start: 20041006
  2. ERBITUX [Concomitant]
  3. CPT-11 [Concomitant]

REACTIONS (1)
  - EXTRAVASATION [None]
